FAERS Safety Report 9401146 (Version 1)
Quarter: 2013Q3

REPORT INFORMATION
  Report Type: Spontaneous
  Country: US (occurrence: US)
  Receive Date: 20130715
  Receipt Date: 20130715
  Transmission Date: 20140515
  Serious: No
  Sender: FDA-Public Use
  Company Number: US-PFIZER INC-US-WYE-H18022010

PATIENT
  Age: 62 Year
  Sex: Female
  Weight: 96.2 kg

DRUGS (5)
  1. EFFEXOR XR [Suspect]
     Indication: DEPRESSION
     Dosage: 37.5 MG, 1X/DAY
     Route: 065
     Dates: start: 2004
  2. EFFEXOR XR [Suspect]
     Indication: DISTURBANCE IN ATTENTION
     Dosage: ON UNKNOWN DATES, THERE WERE PLANNED INCREASED TO 150 MG DAILY
     Route: 065
  3. EFFEXOR XR [Suspect]
     Dosage: 75 MG, 1X/DAY
     Route: 065
     Dates: end: 2005
  4. EFFEXOR XR [Suspect]
     Dosage: 112.5 MG, 1X/DAY
     Route: 065
     Dates: start: 2005, end: 201007
  5. EFFEXOR XR [Suspect]
     Dosage: 75 MG, 1X/DAY
     Route: 065
     Dates: start: 201007

REACTIONS (8)
  - Unevaluable event [Recovered/Resolved]
  - Somnolence [Recovered/Resolved]
  - Drug ineffective [Not Recovered/Not Resolved]
  - Crying [Unknown]
  - Electrocardiogram abnormal [Unknown]
  - Cardiac disorder [Unknown]
  - Ejection fraction decreased [Unknown]
  - Body height decreased [Not Recovered/Not Resolved]
